FAERS Safety Report 8984371 (Version 2)
Quarter: 2013Q1

REPORT INFORMATION
  Report Type: Spontaneous
  Country: DE (occurrence: None)
  Receive Date: 20121217
  Receipt Date: 20130225
  Transmission Date: 20140127
  Serious: Yes (Other)
  Sender: FDA-Public Use
  Company Number: ACO_33305_2012

PATIENT
  Age: 74 Year
  Sex: Female

DRUGS (12)
  1. FAMPYRA [Suspect]
     Indication: SECONDARY PROGRESSIVE MULTIPLE SCLEROSIS
     Dosage: 10 MG, BID, ORAL?11/19/2012 TO UNK
     Route: 048
     Dates: start: 20121119
  2. L-THYROX HEXAL (LEVOTHYROXINE SODIUM) [Concomitant]
  3. LYRICA (PREGABALIN) [Concomitant]
  4. PANTOZOL [Concomitant]
  5. CALCIUM ACETATE (CALCIUM ACETATE) [Concomitant]
  6. MILGAMMA MONO (BENFOTIAMINE) [Concomitant]
  7. SIMVASTATIN AL (SIMVASTATIN) [Concomitant]
  8. SPASMEX (TROSPIUM CHLORIDE) [Concomitant]
  9. ROCALTROL (CALCITRIOL) [Concomitant]
  10. CONCOR COR (BISOPROLOL FUMARATE) [Concomitant]
  11. MARCUPHEN (PHENPROCOUMON) [Concomitant]
  12. TENSOFLUX (AMILORIDE HYDROCHLORIDE, BENDROFLUMETHIAZIDE) [Concomitant]

REACTIONS (3)
  - Myoclonus [None]
  - Off label use [None]
  - Wrong technique in drug usage process [None]
